FAERS Safety Report 25358862 (Version 3)
Quarter: 2025Q4

REPORT INFORMATION
  Report Type: Spontaneous
  Country: US (occurrence: US)
  Receive Date: 20250526
  Receipt Date: 20251120
  Transmission Date: 20260119
  Serious: Yes (Other)
  Sender: SANOFI AVENTIS
  Company Number: US-SA-2025SA148638

PATIENT
  Age: 58 Year
  Sex: Female

DRUGS (1)
  1. DUPIXENT [Suspect]
     Active Substance: DUPILUMAB
     Indication: Neurodermatitis
     Dosage: 300 MG, QOW
     Route: 058

REACTIONS (10)
  - Immunodeficiency [Unknown]
  - Lung transplant [Unknown]
  - Nausea [Unknown]
  - Dry mouth [Unknown]
  - Dry skin [Unknown]
  - Sleep disorder [Unknown]
  - Scratch [Unknown]
  - Pruritus [Unknown]
  - Injection site reaction [Unknown]
  - Injection site pain [Unknown]
